FAERS Safety Report 4908030-8 (Version None)
Quarter: 2006Q1

REPORT INFORMATION
  Report Type: 
  Country: None (occurrence: None)
  Receive Date: 20060210
  Receipt Date: 20060208
  Transmission Date: 20060701
  Serious: Yes (Other)
  Sender: FDA-Public Use
  Company Number: 200610571EU

PATIENT
  Age: 37 Year
  Sex: Female

DRUGS (2)
  1. NICORETTE [Suspect]
     Dosage: 4MG SEE DOSAGE TEXT
     Dates: start: 20041201
  2. ASTHMA MEDICATION [Concomitant]
     Indication: ASTHMA
     Route: 055
     Dates: start: 19960101

REACTIONS (2)
  - DEPENDENCE [None]
  - MEDICATION ERROR [None]
